FAERS Safety Report 5353600-9 (Version None)
Quarter: 2007Q2

REPORT INFORMATION
  Report Type: 
  Country: None (occurrence: None)
  Receive Date: 20070608
  Receipt Date: 20070524
  Transmission Date: 20071010
  Serious: Yes (Death, Other)
  Sender: FDA-Public Use
  Company Number: 2007RR-07800

PATIENT
  Age: 66 Year
  Sex: Female

DRUGS (1)
  1. GABAPENTIN [Suspect]
     Indication: ABDOMINAL PAIN
     Dosage: 600 MG, TID, ORAL
     Route: 048

REACTIONS (4)
  - BLINDNESS [None]
  - METASTASES TO LUNG [None]
  - METASTATIC NEOPLASM [None]
  - OVARIAN CANCER [None]
